FAERS Safety Report 7672329 (Version 2)
Quarter: 2013Q4

REPORT INFORMATION
  Report Type: Spontaneous
  Country: US (occurrence: US)
  Receive Date: 20101117
  Receipt Date: 20131211
  Transmission Date: 20140711
  Serious: Yes (Other)
  Sender: FDA-Public Use
  Company Number: US-BAYER-201040978NA

PATIENT
  Age: 19 Year
  Sex: Female

DRUGS (6)
  1. YAZ [Suspect]
     Route: 048
     Dates: start: 200808, end: 201003
  2. YASMIN [Suspect]
     Route: 048
     Dates: start: 200808, end: 201003
  3. OCELLA [Suspect]
     Route: 048
     Dates: start: 200808, end: 201003
  4. PRILOSEC [Concomitant]
     Dosage: 20 MG, ONCE A DAY
     Dates: start: 20080812, end: 20080912
  5. CARAFATE [Concomitant]
     Dosage: 1 G, BID (BEFORE MEALS AND AT BEDTIME)
  6. REGLAN [Concomitant]
     Dosage: UNK
     Dates: start: 20080812

REACTIONS (2)
  - Gallbladder disorder [None]
  - Biliary dyskinesia [None]
